FAERS Safety Report 7117526-2 (Version None)
Quarter: 2010Q4

REPORT INFORMATION
  Report Type: 
  Country: None (occurrence: None)
  Receive Date: 20101122
  Receipt Date: 20101108
  Transmission Date: 20110411
  Serious: Yes (Other)
  Sender: FDA-Public Use
  Company Number: CA-GENENTECH-300636

PATIENT
  Sex: Male

DRUGS (4)
  1. XOLAIR [Suspect]
     Indication: PRODUCT USED FOR UNKNOWN INDICATION
     Dosage: UNK
     Route: 065
  2. XOLAIR [Suspect]
     Dosage: UNK
     Route: 065
     Dates: start: 20100201
  3. XOLAIR [Suspect]
     Dosage: UNK
     Route: 065
     Dates: start: 20100318
  4. XOLAIR [Suspect]
     Dosage: UNK
     Route: 065
     Dates: start: 20100409

REACTIONS (2)
  - ASTHMA [None]
  - HYPERSENSITIVITY [None]
